FAERS Safety Report 10272962 (Version 1)
Quarter: 2014Q2

REPORT INFORMATION
  Report Type: Spontaneous
  Country: DE (occurrence: None)
  Receive Date: 20140627
  Receipt Date: 20140627
  Transmission Date: 20141212
  Serious: Yes (Death)
  Sender: FDA-Public Use
  Company Number: IPC201406-000313

PATIENT
  Age: 54 Year
  Sex: Male

DRUGS (6)
  1. HYDROCHLOROTHIAZIDE [Suspect]
  2. VALPROIC ACID [Suspect]
     Indication: EPILEPSY
  3. ISOSORBIDE DINITRATE [Suspect]
  4. TRIAMTERENE [Suspect]
  5. THYROXINE [Suspect]
  6. DIAZEPAM [Suspect]

REACTIONS (1)
  - Hepatic failure [None]
